FAERS Safety Report 15136778 (Version 1)
Quarter: 2018Q3

REPORT INFORMATION
  Report Type: Report from Study
  Country: US (occurrence: US)
  Receive Date: 20180712
  Receipt Date: 20180712
  Transmission Date: 20181010
  Serious: Yes (Hospitalization, Other)
  Sender: FDA-Public Use
  Company Number: US-TAKEDA-2018TUS000615

PATIENT
  Age: 58 Year
  Sex: Male

DRUGS (2)
  1. VEDOLIZUMAB [Suspect]
     Active Substance: VEDOLIZUMAB
     Indication: CROHN^S DISEASE
     Dosage: 300 MG, UNK
     Route: 042
     Dates: start: 20171211
  2. PREDNISONE. [Concomitant]
     Active Substance: PREDNISONE
     Dosage: UNK
     Dates: start: 20171126

REACTIONS (6)
  - Intestinal obstruction [Unknown]
  - Cough [Not Recovered/Not Resolved]
  - Acute hepatic failure [Unknown]
  - Pneumonia [Unknown]
  - Muscle spasms [Unknown]
  - Hepatitis A [Unknown]

NARRATIVE: CASE EVENT DATE: 2018
